FAERS Safety Report 4561154-X (Version None)
Quarter: 2005Q1

REPORT INFORMATION
  Report Type: 
  Country: None (occurrence: None)
  Receive Date: 20050124
  Receipt Date: 20050113
  Transmission Date: 20050727
  Serious: Yes (Death)
  Sender: FDA-Public Use
  Company Number: 05-0004PO

PATIENT
  Age: 20 Year
  Sex: Female

DRUGS (4)
  1. PONSTAN (MEFANAMIC ACID) PONSTEL, NDA 15-034 [Suspect]
     Indication: THERAPEUTIC AGENT TOXICITY
  2. EPANUTIN SUSPENSION (PHENYTOIN SODIUM) [Suspect]
     Indication: THERAPEUTIC AGENT TOXICITY
  3. PARACETAMOL (PARACETAMOL) [Suspect]
     Indication: THERAPEUTIC AGENT TOXICITY
     Dosage: PO
     Route: 048
  4. SALBUTAMOL (SALBUTAMOL) [Suspect]
     Indication: THERAPEUTIC AGENT TOXICITY

REACTIONS (6)
  - CONVULSION [None]
  - ENCEPHALOPATHY [None]
  - HEPATIC FAILURE [None]
  - PYREXIA [None]
  - RENAL IMPAIRMENT [None]
  - THERAPEUTIC RESPONSE INCREASED [None]
